FAERS Safety Report 8292812-1 (Version None)
Quarter: 2012Q2

REPORT INFORMATION
  Report Type: 
  Country: None (occurrence: None)
  Receive Date: 20120417
  Receipt Date: 20111102
  Transmission Date: 20120825
  Serious: No
  Sender: FDA-Public Use
  Company Number: US-ASTRAZENECA-2010SE45498

PATIENT
  Age: 70 Year
  Sex: Female

DRUGS (1)
  1. NEXIUM [Suspect]
     Route: 048

REACTIONS (10)
  - OROPHARYNGEAL SPASM [None]
  - NAUSEA [None]
  - MALAISE [None]
  - NON-CARDIAC CHEST PAIN [None]
  - ASTHENIA [None]
  - VOMITING [None]
  - DRUG DOSE OMISSION [None]
  - DYSPEPSIA [None]
  - SCAR [None]
  - KELOID SCAR [None]
